FAERS Safety Report 14926746 (Version 3)
Quarter: 2018Q3

REPORT INFORMATION
  Report Type: Spontaneous
  Country: BR (occurrence: BR)
  Receive Date: 20180523
  Receipt Date: 20180818
  Transmission Date: 20181010
  Serious: Yes (Death, Hospitalization, Other)
  Sender: FDA-Public Use
  Company Number: BR-B.I. PHARMACEUTICALS,INC./RIDGEFIELD-2018-BI-026421

PATIENT
  Age: 57 Year
  Sex: Male
  Weight: 73 kg

DRUGS (9)
  1. ESPIRONOLACTONA [Concomitant]
     Active Substance: SPIRONOLACTONE
     Indication: CARDIAC DISORDER
     Route: 048
     Dates: start: 201803
  2. BEROTEC [Suspect]
     Active Substance: FENOTEROL HYDROBROMIDE
     Indication: EMPHYSEMA
     Dosage: AEROSOL; UNIT DOSE: 100 MICROGRAM
     Route: 055
     Dates: end: 201711
  3. BEROTEC [Suspect]
     Active Substance: FENOTEROL HYDROBROMIDE
     Dosage: UNIT DOSE: 8 DROPS OF 5MG/ML
     Route: 055
     Dates: start: 2017, end: 201711
  4. CARVEDILOL. [Concomitant]
     Active Substance: CARVEDILOL
     Indication: CARDIAC DISORDER
     Route: 048
     Dates: start: 201803
  5. BEROTEC [Suspect]
     Active Substance: FENOTEROL HYDROBROMIDE
     Dosage: AEROSOL; UNIT DOSE: 100 MICROGRAM
     Route: 055
     Dates: start: 201803
  6. ALENIA [Concomitant]
     Active Substance: BUDESONIDE\FORMOTEROL FUMARATE
     Indication: LUNG DISORDER
     Route: 048
     Dates: start: 2017
  7. MALEATO DE ENALAPRIL [Concomitant]
     Indication: CARDIAC DISORDER
     Route: 048
     Dates: start: 201803
  8. ATROVENT [Concomitant]
     Active Substance: IPRATROPIUM BROMIDE
     Indication: LUNG DISORDER
     Dosage: UNIT DOSE: 20 MICROGRAM
     Route: 048
     Dates: start: 201803
  9. ATROVENT [Suspect]
     Active Substance: IPRATROPIUM BROMIDE
     Indication: EMPHYSEMA
     Dosage: UNIT DOSE: 20 DROPS OF 0.25MG/ML; FREQUENCY: 3 OR 4 TIMES A DAY
     Route: 055
     Dates: start: 2017, end: 201711

REACTIONS (10)
  - Dyspnoea [Recovered/Resolved]
  - Extra dose administered [Unknown]
  - Incorrect dose administered [Unknown]
  - Product quality issue [Unknown]
  - Loss of consciousness [Unknown]
  - Cardiac disorder [Unknown]
  - Cardio-respiratory arrest [Fatal]
  - Respiratory arrest [Recovered/Resolved]
  - Cardio-respiratory arrest [Unknown]
  - Lung disorder [Unknown]

NARRATIVE: CASE EVENT DATE: 201711
